FAERS Safety Report 23322169 (Version 3)
Quarter: 2024Q1

REPORT INFORMATION
  Report Type: Report from Study
  Country: DE (occurrence: DE)
  Receive Date: 20231220
  Receipt Date: 20240318
  Transmission Date: 20240410
  Serious: Yes (Other)
  Sender: FDA-Public Use
  Company Number: DE-TAKEDA-2023TUS121372

PATIENT
  Age: 64 Year
  Sex: Female

DRUGS (12)
  1. TEDUGLUTIDE [Suspect]
     Active Substance: TEDUGLUTIDE
     Indication: Short-bowel syndrome
     Dosage: 3 MILLIGRAM, QD
     Route: 042
     Dates: start: 20151109, end: 201801
  2. TEDUGLUTIDE [Suspect]
     Active Substance: TEDUGLUTIDE
     Indication: Short-bowel syndrome
     Dosage: 3 MILLIGRAM, QD
     Route: 042
     Dates: start: 20151109, end: 201801
  3. TEDUGLUTIDE [Suspect]
     Active Substance: TEDUGLUTIDE
     Indication: Short-bowel syndrome
     Dosage: 3 MILLIGRAM, QD
     Route: 042
     Dates: start: 20151109, end: 201801
  4. TEDUGLUTIDE [Suspect]
     Active Substance: TEDUGLUTIDE
     Indication: Short-bowel syndrome
     Dosage: 3 MILLIGRAM, QD
     Route: 042
     Dates: start: 20151109, end: 201801
  5. TEDUGLUTIDE [Suspect]
     Active Substance: TEDUGLUTIDE
     Dosage: 3 MILLIGRAM, QD
     Route: 042
     Dates: start: 20190201
  6. TEDUGLUTIDE [Suspect]
     Active Substance: TEDUGLUTIDE
     Dosage: 3 MILLIGRAM, QD
     Route: 042
     Dates: start: 20190201
  7. TEDUGLUTIDE [Suspect]
     Active Substance: TEDUGLUTIDE
     Dosage: 3 MILLIGRAM, QD
     Route: 042
     Dates: start: 20190201
  8. TEDUGLUTIDE [Suspect]
     Active Substance: TEDUGLUTIDE
     Dosage: 3 MILLIGRAM, QD
     Route: 042
     Dates: start: 20190201
  9. PROPOFOL [Concomitant]
     Active Substance: PROPOFOL
     Indication: Gastrointestinal scan
     Dosage: 380 MILLIGRAM, SINGLE
     Route: 042
     Dates: start: 20230810, end: 20230810
  10. PHYTONADIONE [Concomitant]
     Active Substance: PHYTONADIONE
     Indication: Short-bowel syndrome
     Dosage: 1 MILLIGRAM, 2/WEEK
     Route: 042
     Dates: start: 20220718
  11. CHOLESTYRAMINE [Concomitant]
     Active Substance: CHOLESTYRAMINE
     Indication: Short-bowel syndrome
     Dosage: 4 GRAM, TID
     Route: 048
     Dates: start: 20220719
  12. PANCRELIPASE [Concomitant]
     Active Substance: PANCRELIPASE
     Indication: Short-bowel syndrome
     Dosage: 25000 INTERNATIONAL UNIT, QID
     Route: 048
     Dates: start: 20220719

REACTIONS (2)
  - Gastric mucosal hypertrophy [Not Recovered/Not Resolved]
  - Mucosal erosion [Recovered/Resolved]

NARRATIVE: CASE EVENT DATE: 20230810
